FAERS Safety Report 22731003 (Version 3)
Quarter: 2023Q4

REPORT INFORMATION
  Report Type: Spontaneous
  Country: FR (occurrence: FR)
  Receive Date: 20230720
  Receipt Date: 20231021
  Transmission Date: 20240110
  Serious: Yes (Hospitalization)
  Sender: FDA-Public Use
  Company Number: None

PATIENT
  Age: 78 Year
  Sex: Male
  Weight: 88 kg

DRUGS (3)
  1. LEVOFLOXACIN [Suspect]
     Active Substance: LEVOFLOXACIN
     Indication: Post procedural sepsis
     Dosage: 750 MILLIGRAM DAILY;
     Route: 065
     Dates: start: 20230515, end: 20230621
  2. LANSOPRAZOLE [Suspect]
     Active Substance: LANSOPRAZOLE
     Indication: Gastrooesophageal reflux disease
     Dosage: UNKNOWN DOSAGE, LONG TERM
     Route: 065
     Dates: end: 20230622
  3. CLINDAMYCIN [Suspect]
     Active Substance: CLINDAMYCIN
     Indication: Post procedural sepsis
     Dosage: 8 DOSAGE FORMS DAILY; 2 TABLETS, 4X/D
     Route: 065
     Dates: start: 20230530, end: 20230621

REACTIONS (1)
  - Rash maculo-papular [Recovering/Resolving]

NARRATIVE: CASE EVENT DATE: 20230620
